FAERS Safety Report 7905828-9 (Version None)
Quarter: 2011Q4

REPORT INFORMATION
  Report Type: 
  Country: None (occurrence: None)
  Receive Date: 20111108
  Receipt Date: 20111026
  Transmission Date: 20120403
  Serious: Yes (Life-Threatening)
  Sender: FDA-Public Use
  Company Number: 2011AT000418

PATIENT
  Sex: Male

DRUGS (6)
  1. ALPROSTADIL [Suspect]
     Indication: TRANSPOSITION OF THE GREAT VESSELS
     Dosage: 0.04 UG/KG;/MIN;IV
     Route: 042
  2. FENTANYL [Concomitant]
  3. PHENOBARBITAL TAB [Concomitant]
  4. HEPARIN [Concomitant]
  5. DOPAMINE HCL [Concomitant]
  6. MIDAZOLAM [Concomitant]

REACTIONS (7)
  - HYPOXIA [None]
  - NO THERAPEUTIC RESPONSE [None]
  - DUCTUS ARTERIOSUS PREMATURE CLOSURE [None]
  - OFF LABEL USE [None]
  - UNRESPONSIVE TO STIMULI [None]
  - CONVULSION [None]
  - ISCHAEMIC STROKE [None]
